FAERS Safety Report 13446541 (Version 2)
Quarter: 2020Q1

REPORT INFORMATION
  Report Type: Spontaneous
  Country: US (occurrence: US)
  Receive Date: 20170417
  Receipt Date: 20200114
  Transmission Date: 20200409
  Serious: No
  Sender: FDA-Public Use
  Company Number: US-LUPIN PHARMACEUTICALS INC.-E2B_00007124

PATIENT
  Age: 63 Year
  Sex: Female
  Weight: 56.69 kg

DRUGS (1)
  1. AMABELZ [Suspect]
     Active Substance: ESTRADIOL\NORETHINDRONE
     Indication: HORMONE REPLACEMENT THERAPY
     Dosage: 1/0.5 MG, QD
     Route: 048
     Dates: start: 20170102

REACTIONS (4)
  - Hot flush [Not Recovered/Not Resolved]
  - Insomnia [Not Recovered/Not Resolved]
  - Drug ineffective [Unknown]
  - Night sweats [Not Recovered/Not Resolved]

NARRATIVE: CASE EVENT DATE: 20170102
